FAERS Safety Report 10450021 (Version 3)
Quarter: 2015Q1

REPORT INFORMATION
  Report Type: Spontaneous
  Country: US (occurrence: US)
  Receive Date: 20140912
  Receipt Date: 20150127
  Transmission Date: 20150720
  Serious: Yes (Hospitalization, Other)
  Sender: FDA-Public Use
  Company Number: US-BAYER-2014-136314

PATIENT
  Age: 21 Year
  Sex: Female
  Weight: 74.83 kg

DRUGS (2)
  1. HYDROCODONE [Concomitant]
     Active Substance: HYDROCODONE
     Indication: SPINA BIFIDA
     Dosage: UNK
     Dates: start: 200902
  2. MIRENA [Suspect]
     Active Substance: LEVONORGESTREL
     Indication: CONTRACEPTION
     Dosage: 20 MCG/24HR, CONT
     Route: 015
     Dates: start: 20090218, end: 20110824

REACTIONS (9)
  - Ectopic pregnancy with contraceptive device [None]
  - Uterine perforation [None]
  - Abdominal pain [None]
  - Emotional distress [None]
  - Anxiety [None]
  - Drug ineffective [None]
  - Injury [None]
  - Depression [None]
  - Off label use [None]
